FAERS Safety Report 19841744 (Version 1)
Quarter: 2021Q3

REPORT INFORMATION
  Report Type: Report from Study
  Country: None (occurrence: AU)
  Receive Date: 20210915
  Receipt Date: 20210915
  Transmission Date: 20211014
  Serious: Yes (Hospitalization, Other)
  Sender: FDA-Public Use
  Company Number: AU-ABBVIE-21K-008-4078609-00

PATIENT
  Age: 68 Year
  Sex: Female

DRUGS (1)
  1. SKYRIZI [Suspect]
     Active Substance: RISANKIZUMAB-RZAA
     Indication: PSORIASIS
     Route: 058
     Dates: start: 20210906

REACTIONS (4)
  - Fall [Unknown]
  - Hydrocephalus [Unknown]
  - Generalised tonic-clonic seizure [Unknown]
  - Facial paralysis [Unknown]

NARRATIVE: CASE EVENT DATE: 202109
